FAERS Safety Report 24926985 (Version 2)
Quarter: 2025Q1

REPORT INFORMATION
  Report Type: Report from Study
  Country: HU (occurrence: HU)
  Receive Date: 20250205
  Receipt Date: 20250219
  Transmission Date: 20250408
  Serious: Yes (Hospitalization, Other)
  Sender: BIOVITRUM
  Company Number: HU-AstraZeneca-CH-00797665A

PATIENT
  Sex: Female

DRUGS (1)
  1. PALIVIZUMAB [Suspect]
     Active Substance: PALIVIZUMAB
     Indication: Respiratory syncytial virus immunisation
     Route: 030
     Dates: end: 20250131

REACTIONS (1)
  - Necrotising colitis [Unknown]

NARRATIVE: CASE EVENT DATE: 20250101
